FAERS Safety Report 22604053 (Version 1)
Quarter: 2023Q2

REPORT INFORMATION
  Report Type: Spontaneous
  Country: NL (occurrence: NL)
  Receive Date: 20230615
  Receipt Date: 20230615
  Transmission Date: 20230722
  Serious: No
  Sender: FDA-Public Use
  Company Number: None

PATIENT
  Sex: Female
  Weight: 60 kg

DRUGS (1)
  1. TERBINAFINE [Suspect]
     Active Substance: TERBINAFINE
     Indication: Onychomycosis
     Dosage: 1X PER DAG (GENEESMIDDEL VOORGESCHREVEN DOOR ARTS: JA )
     Route: 065
     Dates: start: 20230301

REACTIONS (2)
  - Ageusia [Not Recovered/Not Resolved]
  - Product substitution issue [Unknown]
